FAERS Safety Report 17911528 (Version 1)
Quarter: 2020Q2

REPORT INFORMATION
  Report Type: Spontaneous
  Country: IT (occurrence: IT)
  Receive Date: 20200618
  Receipt Date: 20200618
  Transmission Date: 20200714
  Serious: Yes (Death)
  Sender: FDA-Public Use
  Company Number: IT-ROCHE-2623397

PATIENT
  Age: 44 Year
  Sex: Female
  Weight: 92 kg

DRUGS (15)
  1. PANTOPRAZOLE [Concomitant]
     Active Substance: PANTOPRAZOLE
  2. RITUXIMAB. [Suspect]
     Active Substance: RITUXIMAB
     Indication: PRODUCT USED FOR UNKNOWN INDICATION
     Route: 042
     Dates: start: 20191001, end: 20191101
  3. BACTRIM [Concomitant]
     Active Substance: SULFAMETHOXAZOLE\TRIMETHOPRIM
  4. DIBASE [Concomitant]
     Active Substance: CHOLECALCIFEROL
  5. PROLIA [Concomitant]
     Active Substance: DENOSUMAB
  6. LASIX [Concomitant]
     Active Substance: FUROSEMIDE
     Route: 065
  7. AMLODIPINE [Concomitant]
     Active Substance: AMLODIPINE BESYLATE
  8. ZOLOFT [Concomitant]
     Active Substance: SERTRALINE HYDROCHLORIDE
  9. CARDIOASPIRIN [Concomitant]
     Active Substance: ASPIRIN
  10. CALCITRIOL. [Concomitant]
     Active Substance: CALCITRIOL
  11. ARANESP [Concomitant]
     Active Substance: DARBEPOETIN ALFA
     Route: 065
  12. HUMALOG [Concomitant]
     Active Substance: INSULIN LISPRO
  13. DELTACORTENE [Concomitant]
     Active Substance: PREDNISONE
     Route: 065
  14. ALLOPURINOL. [Concomitant]
     Active Substance: ALLOPURINOL
  15. TOUJEO [Concomitant]
     Active Substance: INSULIN GLARGINE

REACTIONS (1)
  - Respiratory failure [Fatal]
